FAERS Safety Report 10495379 (Version 20)
Quarter: 2015Q3

REPORT INFORMATION
  Report Type: Report from Study
  Country: NL (occurrence: NL)
  Receive Date: 20141003
  Receipt Date: 20150707
  Transmission Date: 20151125
  Serious: Yes (Hospitalization)
  Sender: FDA-Public Use
  Company Number: NL-009507513-1409NLD000395

PATIENT
  Age: 57 Year
  Sex: Male
  Weight: 70 kg

DRUGS (11)
  1. PREDNISOLONE. [Concomitant]
     Active Substance: PREDNISOLONE
     Dosage: 5 MG, QD
     Route: 048
     Dates: start: 201308, end: 20140911
  2. PEMBROLIZUMAB. [Suspect]
     Active Substance: PEMBROLIZUMAB
     Dosage: Q3W. CYCLE 19
     Route: 042
     Dates: start: 20141002, end: 20141002
  3. ACETAMINOPHEN. [Concomitant]
     Active Substance: ACETAMINOPHEN
     Dosage: 1000 MG, QID
     Route: 048
     Dates: start: 20150101, end: 20150107
  4. ACETAMINOPHEN. [Concomitant]
     Active Substance: ACETAMINOPHEN
     Indication: PAIN
     Dosage: TOTAL DAILY DOSE 4000 MG, PRN
     Route: 048
     Dates: start: 201308, end: 20141231
  5. ACETAMINOPHEN. [Concomitant]
     Active Substance: ACETAMINOPHEN
     Dosage: TOTAL DAILY DOSE: 1000 MG, PRN
     Route: 048
     Dates: start: 20150108
  6. PEMBROLIZUMAB. [Suspect]
     Active Substance: PEMBROLIZUMAB
     Dosage: Q3W. CYCLE 18
     Route: 042
     Dates: start: 20140911, end: 20140911
  7. PEMBROLIZUMAB. [Suspect]
     Active Substance: PEMBROLIZUMAB
     Dosage: Q3W. CYCLE 17
     Route: 042
     Dates: start: 20140822, end: 20140822
  8. OMEPRAZOLE. [Concomitant]
     Active Substance: OMEPRAZOLE
     Indication: PROPHYLAXIS
     Dosage: 20 MG, QD
     Route: 048
     Dates: start: 201308
  9. PEMBROLIZUMAB. [Suspect]
     Active Substance: PEMBROLIZUMAB
     Indication: MALIGNANT MELANOMA
     Dosage: Q3W. CYCLE 1 TO 16
     Route: 042
     Dates: start: 20130920, end: 20140731
  10. FRAXODI [Concomitant]
     Active Substance: NADROPARIN CALCIUM
     Indication: PORTAL VEIN THROMBOSIS
     Dosage: 0.6 ML, QD
     Route: 058
     Dates: start: 20130907
  11. DICLOFENAC [Concomitant]
     Active Substance: DICLOFENAC
     Indication: PAIN
     Dosage: TOTAL DAILY DOSE: 150 MG
     Route: 048
     Dates: start: 201308

REACTIONS (4)
  - Secondary adrenocortical insufficiency [Not Recovered/Not Resolved]
  - Pancreatitis [Recovered/Resolved]
  - Pancreatitis [Recovered/Resolved]
  - Pancreatitis [Recovered/Resolved]

NARRATIVE: CASE EVENT DATE: 20140823
